FAERS Safety Report 9432364 (Version 3)
Quarter: 2014Q2

REPORT INFORMATION
  Report Type: Spontaneous
  Country: US (occurrence: US)
  Receive Date: 20130729
  Receipt Date: 20140618
  Transmission Date: 20141212
  Serious: Yes (Life-Threatening, Hospitalization, Other)
  Sender: FDA-Public Use
  Company Number: IMP_06769_2013

PATIENT
  Age: 15 Year
  Sex: Female

DRUGS (2)
  1. METFORMIN [Suspect]
     Indication: PRODUCT USED FOR UNKNOWN INDICATION
     Dosage: 75000 MG, 1X, NOT THE PRESCRIBED DOSAGE. (DF)
  2. QUETIAPINE [Suspect]
     Indication: MAJOR DEPRESSION
     Dosage: 3000MG, 1X, NOT THE PRESCRIBED DOSAGE, ORAL, (DF).
     Route: 048

REACTIONS (4)
  - Intentional overdose [None]
  - Hypoglycaemia [None]
  - Vomiting [None]
  - Heart rate increased [None]
